FAERS Safety Report 11718774 (Version 1)
Quarter: 2015Q4

REPORT INFORMATION
  Report Type: Spontaneous
  Country: FR (occurrence: FR)
  Receive Date: 20151109
  Receipt Date: 20151109
  Transmission Date: 20160304
  Serious: Yes (Other)
  Sender: FDA-Public Use
  Company Number: PHHY2015FR145434

PATIENT
  Age: 65 Year
  Sex: Female

DRUGS (4)
  1. SANDIMMUN [Suspect]
     Active Substance: CYCLOSPORINE
     Indication: BONE MARROW TRANSPLANT
     Dosage: 160 MG, QD
     Route: 042
     Dates: start: 20140724
  2. MYCAMINE [Concomitant]
     Active Substance: MICAFUNGIN SODIUM
     Indication: INFECTION PROPHYLAXIS
     Route: 065
  3. ZELITREX [Concomitant]
     Active Substance: VALACYCLOVIR HYDROCHLORIDE
     Indication: INFECTION PROPHYLAXIS
     Route: 065
  4. SANDIMMUN [Suspect]
     Active Substance: CYCLOSPORINE
     Indication: PROPHYLAXIS AGAINST GRAFT VERSUS HOST DISEASE

REACTIONS (2)
  - Status epilepticus [Recovered/Resolved]
  - Posterior reversible encephalopathy syndrome [Not Recovered/Not Resolved]

NARRATIVE: CASE EVENT DATE: 20140801
